FAERS Safety Report 20629226 (Version 1)
Quarter: 2022Q1

REPORT INFORMATION
  Report Type: Spontaneous
  Country: CA (occurrence: CA)
  Receive Date: 20220323
  Receipt Date: 20220323
  Transmission Date: 20220424
  Serious: Yes (Life-Threatening, Hospitalization, Other)
  Sender: FDA-Public Use
  Company Number: CA-JAZZ-2022-CA-008592

PATIENT
  Age: 13 Year
  Sex: Female
  Weight: 42 kg

DRUGS (5)
  1. ERWINASE [Suspect]
     Active Substance: ASPARAGINASE ERWINIA CHRYSANTHEMI
     Indication: Chemotherapy
  2. CYTARABINE [Suspect]
     Active Substance: CYTARABINE
     Indication: Chemotherapy
  3. METHOTREXATE [Suspect]
     Active Substance: METHOTREXATE
     Indication: Chemotherapy
  4. THIOGUANINE [Suspect]
     Active Substance: THIOGUANINE
     Indication: Chemotherapy
  5. VINCRISTINE SULFATE [Suspect]
     Active Substance: VINCRISTINE SULFATE
     Indication: Chemotherapy

REACTIONS (1)
  - Febrile neutropenia [Recovered/Resolved]
